FAERS Safety Report 19101299 (Version 2)
Quarter: 2021Q3

REPORT INFORMATION
  Report Type: Spontaneous
  Country: US (occurrence: US)
  Receive Date: 20210407
  Receipt Date: 20210813
  Transmission Date: 20211014
  Serious: Yes (Death, Other)
  Sender: FDA-Public Use
  Company Number: US-ASTRAZENECA-2021A264162

PATIENT
  Age: 59 Year
  Sex: Female
  Weight: 66.7 kg

DRUGS (44)
  1. SIMVASTATIN. [Concomitant]
     Active Substance: SIMVASTATIN
     Indication: BLOOD CHOLESTEROL INCREASED
     Dates: start: 201101, end: 201401
  2. LATANOPROST. [Concomitant]
     Active Substance: LATANOPROST
  3. NICOTINE. [Concomitant]
     Active Substance: NICOTINE
  4. PRILOSEC [Suspect]
     Active Substance: OMEPRAZOLE MAGNESIUM
     Indication: GASTROOESOPHAGEAL REFLUX DISEASE
     Route: 048
     Dates: start: 2013, end: 2014
  5. PRILOSEC OTC [Suspect]
     Active Substance: OMEPRAZOLE MAGNESIUM
     Indication: GASTROOESOPHAGEAL REFLUX DISEASE
     Route: 048
  6. AMITRITYLINE [Concomitant]
     Active Substance: AMITRIPTYLINE
     Indication: NEURALGIA
     Dates: start: 201611, end: 2018
  7. PLAVIX [Concomitant]
     Active Substance: CLOPIDOGREL BISULFATE
     Indication: CARDIAC DISORDER
     Dates: start: 201105, end: 201301
  8. ASPIRIN. [Concomitant]
     Active Substance: ASPIRIN
     Dates: start: 2009, end: 2018
  9. VITAMIN D3 [Concomitant]
     Active Substance: CHOLECALCIFEROL
     Dates: start: 2008, end: 2018
  10. LYRICA [Concomitant]
     Active Substance: PREGABALIN
  11. CELEBREX [Concomitant]
     Active Substance: CELECOXIB
  12. DICYCLOMINE [Concomitant]
     Active Substance: DICYCLOMINE HYDROCHLORIDE
  13. ECONAZOLE NITRATE. [Concomitant]
     Active Substance: ECONAZOLE NITRATE
  14. ENALAPRIL [Concomitant]
     Active Substance: ENALAPRIL
     Indication: BLOOD CHOLESTEROL INCREASED
     Dates: start: 201607, end: 201711
  15. ZETIA [Concomitant]
     Active Substance: EZETIMIBE
  16. ISOSORBIDE MONONITRATE. [Concomitant]
     Active Substance: ISOSORBIDE MONONITRATE
  17. FLUTICASONE. [Concomitant]
     Active Substance: FLUTICASONE
  18. EFFIENT [Concomitant]
     Active Substance: PRASUGREL HYDROCHLORIDE
  19. PROAIR HFA [Concomitant]
     Active Substance: ALBUTEROL SULFATE
  20. CELECOXIB. [Concomitant]
     Active Substance: CELECOXIB
     Indication: PAIN
     Dates: start: 201503, end: 201605
  21. CLOTRIMAZOLE. [Concomitant]
     Active Substance: CLOTRIMAZOLE
  22. VITAMIN B12 [Concomitant]
     Active Substance: CYANOCOBALAMIN
     Dates: start: 2009, end: 2018
  23. TIZANIDINE. [Concomitant]
     Active Substance: TIZANIDINE
  24. PRILOSEC [Suspect]
     Active Substance: OMEPRAZOLE MAGNESIUM
     Indication: GASTROOESOPHAGEAL REFLUX DISEASE
     Dosage: GENERIC
     Route: 065
     Dates: start: 20110128, end: 20110409
  25. MAGNESIUM [Concomitant]
     Active Substance: MAGNESIUM
     Dates: start: 2010, end: 2018
  26. NITROGLYCERIN. [Concomitant]
     Active Substance: NITROGLYCERIN
  27. CHANTIX [Concomitant]
     Active Substance: VARENICLINE TARTRATE
  28. VENTOLIN HFA [Concomitant]
     Active Substance: ALBUTEROL SULFATE
  29. TRIAMCINOLONE [Concomitant]
     Active Substance: TRIAMCINOLONE
  30. DIOVAN [Concomitant]
     Active Substance: VALSARTAN
     Indication: HYPERTENSION
     Dates: start: 201101
  31. FAMOTIDINE. [Concomitant]
     Active Substance: FAMOTIDINE
     Dates: start: 20110421, end: 20121107
  32. SYMBICORT [Concomitant]
     Active Substance: BUDESONIDE\FORMOTEROL FUMARATE DIHYDRATE
  33. RANEXA [Concomitant]
     Active Substance: RANOLAZINE
  34. HYDROQUINONE. [Concomitant]
     Active Substance: HYDROQUINONE
  35. ATORVASTATIN [Concomitant]
     Active Substance: ATORVASTATIN
     Indication: BLOOD CHOLESTEROL INCREASED
     Dates: start: 201711
  36. DOXYCYCLINE. [Concomitant]
     Active Substance: DOXYCYCLINE
     Indication: INFECTION
     Dates: start: 201608
  37. CLOPIDOGREL [Concomitant]
     Active Substance: CLOPIDOGREL BISULFATE
     Indication: ANTICOAGULANT THERAPY
     Dates: start: 201206, end: 201404
  38. FOLIC ACID. [Concomitant]
     Active Substance: FOLIC ACID
     Dates: start: 2009, end: 2018
  39. CALCIUM [Concomitant]
     Active Substance: CALCIUM
     Dates: start: 2011, end: 2018
  40. VITAMIN D2 [Concomitant]
     Active Substance: ERGOCALCIFEROL
     Dates: start: 2009, end: 2018
  41. METOPROLOL. [Concomitant]
     Active Substance: METOPROLOL
  42. NICODERM CQ [Concomitant]
     Active Substance: NICOTINE
  43. DIAZEPAM. [Concomitant]
     Active Substance: DIAZEPAM
  44. EZETIMIBE. [Concomitant]
     Active Substance: EZETIMIBE

REACTIONS (7)
  - Rebound acid hypersecretion [Unknown]
  - Acute kidney injury [Unknown]
  - Cardiac arrest [Fatal]
  - Coronary artery disease [Fatal]
  - Renal failure [Unknown]
  - Hypertension [Fatal]
  - Chronic kidney disease [Unknown]

NARRATIVE: CASE EVENT DATE: 2010
